FAERS Safety Report 8129767-6 (Version None)
Quarter: 2011Q4

REPORT INFORMATION
  Report Type: 
  Country: None (occurrence: None)
  Receive Date: 20111227
  Receipt Date: 20111101
  Transmission Date: 20120403
  Serious: No
  Sender: FDA-Public Use
  Company Number: PHEH2011US08521

PATIENT
  Age: 39 Year
  Sex: Female

DRUGS (4)
  1. CITALOPRAM (CITALOPRAM) TABLET, 10 MG [Concomitant]
  2. NAPROXEN SODIUM (NAPROXEN SODIUM) TABLET, 220 MG [Concomitant]
  3. NUVIGIL (ARMODAFINIL) TABLET, 50 MG [Concomitant]
  4. GILENYA [Suspect]
     Dosage: 0.5 MG, EVERY DAY, ORAL
     Route: 048

REACTIONS (1)
  - ABDOMINAL DISCOMFORT [None]
